FAERS Safety Report 13697537 (Version 1)
Quarter: 2017Q2

REPORT INFORMATION
  Report Type: Report from Study
  Country: IE (occurrence: IE)
  Receive Date: 20170628
  Receipt Date: 20170628
  Transmission Date: 20170830
  Serious: Yes (Other)
  Sender: FDA-Public Use
  Company Number: IE-TEVA-780109ISR

PATIENT
  Age: 30 Year
  Sex: Female

DRUGS (4)
  1. PREGNACARE [Concomitant]
     Active Substance: MINERALS\VITAMINS
     Route: 065
  2. VITAMIN D [Concomitant]
     Active Substance: CHOLECALCIFEROL
     Route: 065
  3. NEO-CYTAMEN [Concomitant]
     Indication: VITAMIN B12 DEFICIENCY
     Route: 030
  4. COPAXONE [Suspect]
     Active Substance: GLATIRAMER ACETATE
     Indication: RELAPSING-REMITTING MULTIPLE SCLEROSIS
     Dosage: 40 MG/ML 3 TIMES A WEEK
     Route: 058
     Dates: start: 20170215

REACTIONS (9)
  - Swelling face [Recovered/Resolved]
  - Sleep disorder [Recovered/Resolved]
  - Rash [Recovered/Resolved]
  - Feeling of body temperature change [Recovered/Resolved]
  - Back pain [Recovered/Resolved]
  - Palpitations [Recovered/Resolved]
  - Vomiting [Recovered/Resolved]
  - Immediate post-injection reaction [Recovered/Resolved]
  - Flushing [Recovered/Resolved]

NARRATIVE: CASE EVENT DATE: 20170615
